FAERS Safety Report 6531240 (Version 2)
Quarter: 2017Q2

REPORT INFORMATION
  Report Type: Spontaneous
  Country: HR (occurrence: HR)
  Receive Date: 20080121
  Receipt Date: 20170601
  Transmission Date: 20170830
  Serious: Yes (Hospitalization)
  Sender: FDA-Public Use
  Company Number: PHBS2008HR00814

PATIENT
  Age: 53 Year
  Sex: Female
  Weight: 83 kg

DRUGS (1)
  1. DICLOFENAC [Suspect]
     Active Substance: DICLOFENAC
     Indication: MYALGIA
     Route: 048

REACTIONS (7)
  - Nephrotic syndrome [Recovered/Resolved]
  - Pallor [Recovered/Resolved]
  - Generalised oedema [Recovered/Resolved]
  - Glomerulonephritis minimal lesion [Recovered/Resolved]
  - Acute kidney injury [Recovered/Resolved]
  - Renal tubular necrosis [Recovered/Resolved]
  - Proteinuria [Unknown]
